FAERS Safety Report 13344967 (Version 1)
Quarter: 2017Q1

REPORT INFORMATION
  Report Type: Spontaneous
  Country: US (occurrence: US)
  Receive Date: 20170316
  Receipt Date: 20170316
  Transmission Date: 20170428
  Serious: Yes (Hospitalization)
  Sender: FDA-Public Use
  Company Number: None

PATIENT
  Age: 1 Year
  Sex: Female

DRUGS (4)
  1. SODIUM CL [Concomitant]
  2. ALBUTEROL. [Concomitant]
     Active Substance: ALBUTEROL
  3. SYNAGIS [Suspect]
     Active Substance: PALIVIZUMAB
     Indication: MUSCULAR DYSTROPHY
     Route: 030
     Dates: start: 20161206
  4. SYNAGIS [Suspect]
     Active Substance: PALIVIZUMAB
     Indication: MUSCULAR DYSTROPHY
     Route: 030
     Dates: start: 20161205

REACTIONS (3)
  - Pneumonia [None]
  - Oxygen saturation decreased [None]
  - Influenza [None]

NARRATIVE: CASE EVENT DATE: 20170314
